FAERS Safety Report 13373212 (Version 1)
Quarter: 2017Q1

REPORT INFORMATION
  Report Type: Spontaneous
  Country: US (occurrence: US)
  Receive Date: 20170327
  Receipt Date: 20170327
  Transmission Date: 20170429
  Serious: No
  Sender: FDA-Public Use
  Company Number: US-009507513-1703USA006835

PATIENT
  Age: 68 Year

DRUGS (2)
  1. STERILE WATER [Suspect]
     Active Substance: WATER
  2. CUBICIN [Suspect]
     Active Substance: DAPTOMYCIN

REACTIONS (3)
  - Circumstance or information capable of leading to medication error [Unknown]
  - Product preparation error [Unknown]
  - No adverse event [Unknown]

NARRATIVE: CASE EVENT DATE: 20170314
